FAERS Safety Report 7371485-6 (Version None)
Quarter: 2011Q1

REPORT INFORMATION
  Report Type: 
  Country: None (occurrence: None)
  Receive Date: 20110324
  Receipt Date: 20110323
  Transmission Date: 20110831
  Serious: Yes (Other)
  Sender: FDA-Public Use
  Company Number: VE-PFIZER INC-2011064074

PATIENT
  Age: 67 Year
  Sex: Female

DRUGS (4)
  1. CALCIUM [Concomitant]
     Dosage: 1500 MG, 1X/DAY
     Route: 048
  2. COAPROVEL [Concomitant]
     Dosage: 300/12.5 MG, 1X/DAY
     Route: 048
  3. ASPIRIN [Concomitant]
     Dosage: 1X/DAY
     Route: 048
  4. LIPITOR [Suspect]
     Indication: CARDIAC DISORDER
     Dosage: 40 MG, 1X/DAY
     Route: 048
     Dates: start: 20100901

REACTIONS (1)
  - CATHETERISATION CARDIAC [None]
